FAERS Safety Report 9159688 (Version 1)
Quarter: 2013Q1

REPORT INFORMATION
  Report Type: Spontaneous
  Country: PT (occurrence: None)
  Receive Date: 20130219
  Receipt Date: 20130219
  Transmission Date: 20140127
  Serious: No
  Sender: FDA-Public Use
  Company Number: 2013S1000447

PATIENT
  Age: 40 Year
  Sex: Male
  Weight: 84 kg

DRUGS (11)
  1. ALIPZA [Suspect]
     Route: 048
     Dates: start: 20130110, end: 20130112
  2. SERTRALINE [Concomitant]
  3. UNSPECIFIED INGREDIENT [Concomitant]
  4. TYROTHRICIN [Concomitant]
  5. CETYLPYRIDINIUM [Concomitant]
  6. CHLORIDE [Concomitant]
  7. OXBUPROCAINE HYDROCHLORIDE [Concomitant]
  8. BETAMETHASONE DIPROPIONATE [Concomitant]
  9. SALICYLIC ACID [Concomitant]
  10. CALCIPOTRIOL [Concomitant]
  11. ALPRAZOLAM [Concomitant]

REACTIONS (4)
  - Abdominal pain [None]
  - Cold sweat [None]
  - Papule [None]
  - Lip swelling [None]
